FAERS Safety Report 7200824-1 (Version None)
Quarter: 2010Q4

REPORT INFORMATION
  Report Type: 
  Country: None (occurrence: None)
  Receive Date: 20101228
  Receipt Date: 20101222
  Transmission Date: 20110411
  Serious: Yes (Other)
  Sender: FDA-Public Use
  Company Number: US-PFIZER INC-2010177897

PATIENT
  Sex: Female
  Weight: 66.2 kg

DRUGS (4)
  1. LIPITOR [Suspect]
     Indication: BLOOD CHOLESTEROL INCREASED
     Dosage: 80 MG, DAILY
     Route: 048
     Dates: start: 20080101
  2. LORTAB [Concomitant]
     Indication: PAIN
     Dosage: 10.5 MG, DAILY
  3. METFORMIN [Concomitant]
     Indication: DIABETES MELLITUS
     Dosage: UNK
  4. HYZAAR [Concomitant]
     Dosage: 12.5 MG, DAILY

REACTIONS (4)
  - GAIT DISTURBANCE [None]
  - HYPERTONIC BLADDER [None]
  - MUSCLE SPASMS [None]
  - MUSCULAR WEAKNESS [None]
